FAERS Safety Report 12245397 (Version 1)
Quarter: 2016Q2

REPORT INFORMATION
  Report Type: Spontaneous
  Country: US (occurrence: None)
  Receive Date: 20160406
  Receipt Date: 20160406
  Transmission Date: 20160815
  Serious: Yes (Other)
  Sender: FDA-Public Use
  Company Number: None

PATIENT
  Sex: Female

DRUGS (1)
  1. SPRYCEL [Suspect]
     Active Substance: DASATINIB
     Indication: BREAST CANCER
     Route: 048
     Dates: start: 20140828

REACTIONS (3)
  - Pain in extremity [None]
  - Myalgia [None]
  - Bone pain [None]
